FAERS Safety Report 7922610-7 (Version None)
Quarter: 2011Q4

REPORT INFORMATION
  Report Type: 
  Country: None (occurrence: None)
  Receive Date: 20111117
  Receipt Date: 20101220
  Transmission Date: 20120403
  Serious: No
  Sender: FDA-Public Use
  Company Number: US-ALLERGAN-1016549US

PATIENT
  Sex: Male

DRUGS (2)
  1. COMBIGAN [Suspect]
     Indication: GLAUCOMA
     Dosage: 1 GTT, BID
     Route: 047
     Dates: start: 20101101
  2. TRAVATAN [Concomitant]
     Indication: PRODUCT USED FOR UNKNOWN INDICATION
     Dosage: UNK
     Route: 047

REACTIONS (5)
  - EYELID OEDEMA [None]
  - SKIN DISORDER [None]
  - OCULAR HYPERAEMIA [None]
  - EYELID MARGIN CRUSTING [None]
  - LACRIMATION INCREASED [None]
